FAERS Safety Report 5087876-2 (Version None)
Quarter: 2006Q3

REPORT INFORMATION
  Report Type: 
  Country: None (occurrence: None)
  Receive Date: 20060821
  Receipt Date: 20060821
  Transmission Date: 20061208
  Serious: Yes (Death)
  Sender: FDA-Public Use
  Company Number: None

PATIENT
  Age: 68 Year
  Sex: Male
  Weight: 90.7194 kg

DRUGS (5)
  1. PLAVIX [Suspect]
     Indication: CORONARY ARTERY BYPASS
     Dosage: 75 MG   DAILY   PO
     Route: 048
     Dates: start: 20050516, end: 20050922
  2. PLAVIX [Suspect]
     Indication: POSTOPERATIVE CARE
     Dosage: 75 MG   DAILY   PO
     Route: 048
     Dates: start: 20050516, end: 20050922
  3. ASPIRIN [Concomitant]
  4. GLUCOTROL XL [Concomitant]
  5. VASOTEC [Concomitant]

REACTIONS (3)
  - CEREBRAL HAEMORRHAGE [None]
  - RED BLOOD CELL SCHISTOCYTES PRESENT [None]
  - THROMBOTIC THROMBOCYTOPENIC PURPURA [None]
